FAERS Safety Report 18895484 (Version 1)
Quarter: 2021Q1

REPORT INFORMATION
  Report Type: Report from Study
  Country: CA (occurrence: CA)
  Receive Date: 20210215
  Receipt Date: 20210215
  Transmission Date: 20210420
  Serious: Yes (Other)
  Sender: FDA-Public Use
  Company Number: CA-NALPROPION PHARMACEUTICALS INC.-2021-012148

PATIENT

DRUGS (6)
  1. CONTRAVE [Suspect]
     Active Substance: BUPROPION HYDROCHLORIDE\NALTREXONE HYDROCHLORIDE
     Dosage: 90MG/8MG: 1 TABLET IN THE MORNING AND 1 TABLET IN THE EVENING, (FIRST ATTEMPT)
     Route: 048
     Dates: start: 20210101, end: 202101
  2. DICLOFENAC [Concomitant]
     Active Substance: DICLOFENAC
     Indication: BACK PAIN
     Dosage: UNK
  3. CONTRAVE [Suspect]
     Active Substance: BUPROPION HYDROCHLORIDE\NALTREXONE HYDROCHLORIDE
     Indication: WEIGHT CONTROL
     Dosage: 90MG/8MG: 1 TABLET IN THE MORNING (FIRST ATTEMPT)
     Route: 048
     Dates: start: 20201225, end: 20201231
  4. CONTRAVE [Suspect]
     Active Substance: BUPROPION HYDROCHLORIDE\NALTREXONE HYDROCHLORIDE
     Dosage: 90MG/8MG: 2 TABLET IN THE MORNING AND 2 TABLET IN THE EVENING, (FIRST ATTEMPT)
     Route: 048
     Dates: start: 20210122, end: 20210124
  5. CONTRAVE [Suspect]
     Active Substance: BUPROPION HYDROCHLORIDE\NALTREXONE HYDROCHLORIDE
     Dosage: 90MG/8MG, 1 TABLET IN THE MORNING AND 1 TABLET IN THE EVENING, SECOND ATTEMPT
     Route: 048
     Dates: start: 20210128
  6. CONTRAVE [Suspect]
     Active Substance: BUPROPION HYDROCHLORIDE\NALTREXONE HYDROCHLORIDE
     Dosage: 90MG/8MG: 1 TABLET IN THE MORNING AND 2 TABLETS IN THE EVENING, (FIRST ATTEMPT)
     Route: 048
     Dates: start: 202101, end: 202101

REACTIONS (10)
  - Loss of consciousness [Recovering/Resolving]
  - Nausea [Recovered/Resolved]
  - Lip dry [Unknown]
  - Constipation [Not Recovered/Not Resolved]
  - Haematochezia [Not Recovered/Not Resolved]
  - Acne [Recovered/Resolved]
  - Headache [Recovering/Resolving]
  - Insomnia [Recovered/Resolved]
  - Asthenia [Not Recovered/Not Resolved]
  - Thirst [Recovering/Resolving]

NARRATIVE: CASE EVENT DATE: 202012
